APPROVED DRUG PRODUCT: ONEXTON
Active Ingredient: BENZOYL PEROXIDE; CLINDAMYCIN PHOSPHATE
Strength: 3.75%;EQ 1.2% BASE
Dosage Form/Route: GEL;TOPICAL
Application: N050819 | Product #002 | TE Code: AB
Applicant: BAUSCH HEALTH AMERICAS INC
Approved: Nov 24, 2014 | RLD: Yes | RS: Yes | Type: RX

PATENTS:
Patent 9561208 | Expires: Jun 3, 2029
Patent 10220049 | Expires: Jun 3, 2029
Patent 9504704 | Expires: Jun 3, 2029
Patent 9504704 | Expires: Jun 3, 2029
Patent 9504704 | Expires: Jun 3, 2029
Patent 8288434 | Expires: Aug 5, 2029
Patent 8288434 | Expires: Aug 5, 2029
Patent 9504704 | Expires: Jun 3, 2029
Patent 8288434 | Expires: Aug 5, 2029
Patent 10137142 | Expires: Jun 3, 2029
Patent 8288434 | Expires: Aug 5, 2029
Patent 8288434 | Expires: Aug 5, 2029
Patent 8288434 | Expires: Aug 5, 2029